FAERS Safety Report 11936924 (Version 4)
Quarter: 2016Q1

REPORT INFORMATION
  Report Type: Spontaneous
  Country: DE (occurrence: DE)
  Receive Date: 20160121
  Receipt Date: 20160317
  Transmission Date: 20160526
  Serious: Yes (Other)
  Sender: FDA-Public Use
  Company Number: DE-SA-2016SA008892

PATIENT
  Age: 30 Year
  Sex: Female

DRUGS (3)
  1. ERGENYL [Concomitant]
     Active Substance: VALPROIC ACID
     Indication: BIPOLAR DISORDER
     Dosage: 500 MG
     Route: 048
     Dates: end: 20160107
  2. AUBAGIO [Suspect]
     Active Substance: TERIFLUNOMIDE
     Indication: MULTIPLE SCLEROSIS
     Route: 048
     Dates: start: 20151224, end: 20151231
  3. AURORIX [Concomitant]
     Active Substance: MOCLOBEMIDE
     Indication: BIPOLAR DISORDER
     Dosage: 150 MG
     Route: 048

REACTIONS (18)
  - Hypotension [Recovered/Resolved]
  - General physical health deterioration [Unknown]
  - Hypersensitivity [Recovered/Resolved]
  - Blister [Recovered/Resolved]
  - Purpura [Recovered/Resolved]
  - Pain [Recovered/Resolved]
  - Myalgia [Recovered/Resolved]
  - Skin lesion [Recovered/Resolved]
  - Arthralgia [Recovered/Resolved]
  - Angioedema [Recovered/Resolved]
  - Pruritus [Recovered/Resolved]
  - Rash maculo-papular [Recovered/Resolved]
  - Erythema [Recovered/Resolved]
  - Oedema peripheral [Recovered/Resolved]
  - Nausea [Recovered/Resolved]
  - Tachycardia [Recovered/Resolved]
  - Dermatitis bullous [Recovered/Resolved]
  - Hepatic enzyme increased [Not Recovered/Not Resolved]

NARRATIVE: CASE EVENT DATE: 201512
